FAERS Safety Report 8126567-8 (Version None)
Quarter: 2012Q1

REPORT INFORMATION
  Report Type: 
  Country: None (occurrence: None)
  Receive Date: 20120210
  Receipt Date: 20120201
  Transmission Date: 20120608
  Serious: Yes (Hospitalization)
  Sender: FDA-Public Use
  Company Number: US-BIOGENIDEC-2010BI020599

PATIENT
  Age: 30 Year
  Sex: Female

DRUGS (5)
  1. TYSABRI [Suspect]
     Indication: MULTIPLE SCLEROSIS
     Route: 042
     Dates: start: 20080528, end: 20090422
  2. TYSABRI [Suspect]
     Route: 042
     Dates: start: 20111005
  3. HYDROCHLOROTHIAZIDE [Concomitant]
  4. TYSABRI [Suspect]
     Route: 042
     Dates: start: 20100520, end: 20100520
  5. AMITRIPTYLINE HCL [Concomitant]
     Dates: end: 20100501

REACTIONS (2)
  - FOETAL DISTRESS SYNDROME [None]
  - PREGNANCY [None]
